FAERS Safety Report 9149621 (Version 1)
Quarter: 2013Q1

REPORT INFORMATION
  Report Type: Spontaneous
  Country: US (occurrence: None)
  Receive Date: 20130228
  Receipt Date: 20130228
  Transmission Date: 20140127
  Serious: No
  Sender: FDA-Public Use
  Company Number: None

PATIENT
  Age: 57 Year
  Sex: Female
  Weight: 104.33 kg

DRUGS (2)
  1. GLUCOPHAGE [Suspect]
     Indication: DIABETES MELLITUS
     Route: 048
  2. CYMBALTA TRADEMARK LILLY [Suspect]
     Indication: PAIN
     Route: 048
     Dates: end: 201302

REACTIONS (9)
  - Diarrhoea [None]
  - Proctitis [None]
  - Vasculitis [None]
  - Nausea [None]
  - Dizziness [None]
  - Vision blurred [None]
  - Somnolence [None]
  - Fluid retention [None]
  - Oedema [None]
